FAERS Safety Report 25332536 (Version 1)
Quarter: 2025Q2

REPORT INFORMATION
  Report Type: Spontaneous
  Country: FR (occurrence: FR)
  Receive Date: 20250519
  Receipt Date: 20250519
  Transmission Date: 20250717
  Serious: Yes (Hospitalization)
  Sender: MERCK SHARP & DOHME LLC
  Company Number: None

PATIENT
  Age: 56 Year
  Sex: Female

DRUGS (13)
  1. KEYTRUDA [Suspect]
     Active Substance: PEMBROLIZUMAB
     Indication: Breast cancer
     Route: 042
     Dates: start: 20250124, end: 20250124
  2. ALDACTAZINE 25 mg/15 mg, scored tablet [Concomitant]
  3. BEXSERO suspension for injection in pre-filled syringe. Meningococc... [Concomitant]
     Dates: start: 20250225, end: 20250225
  4. FOLIC ACID [Concomitant]
     Active Substance: FOLIC ACID
  5. PENICILLIN V [Suspect]
     Active Substance: PENICILLIN V
     Indication: Prophylactic chemotherapy
     Dosage: 1 MIU IN TABLET MORNING AND EVENING
     Route: 048
     Dates: start: 20250225, end: 20250309
  6. DAPAGLIFLOZIN [Concomitant]
     Active Substance: DAPAGLIFLOZIN
  7. GEMCITABINE HYDROCHLORIDE [Concomitant]
     Active Substance: GEMCITABINE HYDROCHLORIDE
  8. CARBOPLATIN [Concomitant]
     Active Substance: CARBOPLATIN
  9. SOLIRIS 300 mg, solution for dilution for infusion [Concomitant]
  10. BICAFRES 1000 mg, gastro-resistant tablet [Concomitant]
  11. NIMENRIX, powder and solvent for solution for injection. Meningococ... [Concomitant]
     Dates: start: 20250225, end: 20250225
  12. ACETAMINOPHEN [Concomitant]
     Active Substance: ACETAMINOPHEN
  13. APREXEVO 300 mg/10 mg, film-coated tablet [Concomitant]

REACTIONS (2)
  - Lichenoid keratosis [Recovering/Resolving]
  - Dermatitis bullous [Recovering/Resolving]

NARRATIVE: CASE EVENT DATE: 20250304
